FAERS Safety Report 7654523-2 (Version None)
Quarter: 2011Q3

REPORT INFORMATION
  Report Type: 
  Country: None (occurrence: None)
  Receive Date: 20110803
  Receipt Date: 20110725
  Transmission Date: 20111222
  Serious: Yes (Hospitalization)
  Sender: FDA-Public Use
  Company Number: BR-ASTRAZENECA-2011SE44938

PATIENT
  Age: 82 Year
  Sex: Female

DRUGS (10)
  1. CYMBALTA [Concomitant]
     Indication: ABDOMINAL PAIN
     Route: 048
     Dates: start: 20100101
  2. REVATIO [Concomitant]
     Indication: HYPERTENSION
     Route: 048
     Dates: start: 20100101
  3. LYRICA [Concomitant]
     Indication: ABDOMINAL PAIN
     Route: 048
     Dates: start: 20100101
  4. LIPLESS [Concomitant]
     Route: 048
  5. ATACAND [Suspect]
     Indication: HYPERTENSION
     Route: 048
     Dates: end: 20100101
  6. CRESTOR [Suspect]
     Route: 048
  7. METICORTEN [Concomitant]
     Route: 048
  8. DIGOXIN [Concomitant]
     Indication: CARDIAC DISORDER
     Route: 048
     Dates: start: 20100101
  9. NORFLOXACIN [Suspect]
     Indication: PROPHYLAXIS URINARY TRACT INFECTION
     Route: 048
     Dates: start: 20100101, end: 20110601
  10. NORFLOXACIN [Suspect]
     Route: 048
     Dates: start: 20110601

REACTIONS (3)
  - PULMONARY EMBOLISM [None]
  - URINARY TRACT INFECTION [None]
  - CHEST PAIN [None]
